FAERS Safety Report 6647844-3 (Version None)
Quarter: 2010Q1

REPORT INFORMATION
  Report Type: 
  Country: None (occurrence: None)
  Receive Date: 20100324
  Receipt Date: 20100310
  Transmission Date: 20100710
  Serious: No
  Sender: FDA-Public Use
  Company Number: US-JNJFOC-20100303535

PATIENT
  Sex: Male
  Weight: 90.72 kg

DRUGS (5)
  1. FENTANYL-100 [Suspect]
     Indication: ARTHRALGIA
     Route: 062
  2. ROBAXIN [Concomitant]
     Indication: MUSCLE RELAXANT THERAPY
     Route: 048
  3. VALIUM [Concomitant]
     Indication: SLEEP DISORDER THERAPY
     Dosage: AT NIGHT
     Route: 048
  4. LUNESTA [Concomitant]
     Indication: SLEEP DISORDER THERAPY
     Dosage: AT NIGHT
     Route: 048
  5. MORPHINE [Concomitant]
     Indication: PAIN

REACTIONS (2)
  - TREATMENT NONCOMPLIANCE [None]
  - WRONG TECHNIQUE IN DRUG USAGE PROCESS [None]
